FAERS Safety Report 16958864 (Version 1)
Quarter: 2019Q4

REPORT INFORMATION
  Report Type: Spontaneous
  Country: DK (occurrence: DK)
  Receive Date: 20191024
  Receipt Date: 20191024
  Transmission Date: 20200122
  Serious: Yes (Hospitalization, Other)
  Sender: FDA-Public Use
  Company Number: DK-PFM-2019-12609

PATIENT

DRUGS (8)
  1. NAVELBINE [Suspect]
     Active Substance: VINORELBINE TARTRATE
     Indication: NON-SMALL CELL LUNG CANCER
     Dosage: 80 MG (DOSE:160 MG)
     Route: 048
     Dates: start: 20190923
  2. ITRACONAZOLE. [Suspect]
     Active Substance: ITRACONAZOLE
     Indication: ORAL CANDIDIASIS
     Dosage: 100 MG
     Route: 048
     Dates: start: 20190916, end: 20190928
  3. MORFIN DAK [Concomitant]
     Active Substance: MORPHINE HYDROCHLORIDE
     Indication: PAIN
     Dosage: 10 MG (DOSE: 5 MG AS NECESSARY)
     Route: 048
     Dates: start: 20190927
  4. PREDNISOLONE. [Concomitant]
     Active Substance: PREDNISOLONE
     Indication: ADRENOCORTICAL STEROID THERAPY
     Dosage: 50 MG
     Route: 048
     Dates: start: 20190923
  5. MYCOSTATIN [Concomitant]
     Active Substance: NYSTATIN
     Indication: ORAL CANDIDIASIS
     Dosage: 3 ML (100.000 IE/ML)
     Route: 048
     Dates: start: 20190927
  6. LIDOCAIN [Concomitant]
     Active Substance: LIDOCAINE
     Indication: PAIN
     Dosage: 20 MG/ML (DOSE: 5 ML AS NECESSARY)
     Route: 048
     Dates: start: 20190927
  7. CHAMPIX [Concomitant]
     Active Substance: VARENICLINE TARTRATE
     Indication: EX-TOBACCO USER
     Dosage: 2 MG
     Route: 048
     Dates: start: 20190717
  8. CARBOPLATIN ACCORD [Interacting]
     Active Substance: CARBOPLATIN
     Indication: NON-SMALL CELL LUNG CANCER
     Dosage: 500 MG (10 MG/ML)
     Route: 042
     Dates: start: 20190923

REACTIONS (6)
  - Dehydration [Not Recovered/Not Resolved]
  - Pyrexia [Not Recovered/Not Resolved]
  - Stomatitis [Not Recovered/Not Resolved]
  - Drug interaction [Not Recovered/Not Resolved]
  - Leukopenia [Not Recovered/Not Resolved]
  - Constipation [Not Recovered/Not Resolved]

NARRATIVE: CASE EVENT DATE: 201909
